FAERS Safety Report 4909914-7 (Version None)
Quarter: 2006Q1

REPORT INFORMATION
  Report Type: 
  Country: None (occurrence: None)
  Receive Date: 20060213
  Receipt Date: 20060203
  Transmission Date: 20060701
  Serious: Yes (Other)
  Sender: FDA-Public Use
  Company Number: 2006UW01958

PATIENT
  Age: 70 Year
  Sex: Male

DRUGS (3)
  1. CRESTOR [Suspect]
     Route: 048
  2. ASPIRIN [Concomitant]
     Route: 048
  3. COVERSYL [Concomitant]
     Route: 048

REACTIONS (5)
  - DIFFICULTY IN WALKING [None]
  - HYPOAESTHESIA [None]
  - MUSCLE ATROPHY [None]
  - NEURALGIA [None]
  - WEIGHT DECREASED [None]
